FAERS Safety Report 4437360-1 (Version None)
Quarter: 2004Q3

REPORT INFORMATION
  Report Type: 
  Country: None (occurrence: None)
  Receive Date: 20040726
  Receipt Date: 20040525
  Transmission Date: 20050211
  Serious: No
  Sender: FDA-Public Use
  Company Number: USA040363526

PATIENT
  Age: 64 Year
  Sex: Female
  Weight: 91 kg

DRUGS (7)
  1. FORTEO [Suspect]
     Indication: OSTEOPOROSIS
     Dosage: 20 UG/1 DAY
     Dates: start: 20031201
  2. LIPITOR [Concomitant]
  3. ALLEGRA [Concomitant]
  4. CALCIUM [Concomitant]
  5. PREVACID [Concomitant]
  6. NAPROSYN [Concomitant]
  7. MOTRIN [Concomitant]

REACTIONS (6)
  - ABDOMINAL PAIN [None]
  - BONE PAIN [None]
  - DIZZINESS [None]
  - MYALGIA [None]
  - NAUSEA [None]
  - UPPER RESPIRATORY TRACT INFECTION [None]
